FAERS Safety Report 10572901 (Version 1)
Quarter: 2014Q4

REPORT INFORMATION
  Report Type: Spontaneous
  Country: US (occurrence: None)
  Receive Date: 20141106
  Receipt Date: 20141106
  Transmission Date: 20150529
  Serious: Yes (Death, Hospitalization, Disabling)
  Sender: FDA-Public Use
  Company Number: 2603507

PATIENT
  Age: 72 Year
  Sex: Male
  Weight: 57.4 kg

DRUGS (6)
  1. NIPENT [Suspect]
     Active Substance: PENTOSTATIN
     Indication: CHRONIC LYMPHOCYTIC LEUKAEMIA
     Dosage: CYCLICAL
     Route: 042
     Dates: start: 20110207
  2. CYCLOPHOSPHAMIDE. [Suspect]
     Active Substance: CYCLOPHOSPHAMIDE
     Indication: CHRONIC LYMPHOCYTIC LEUKAEMIA
     Dosage: CYCLICAL
     Route: 042
     Dates: start: 20110207
  3. CYCLOPHOSPHAMIDE. [Suspect]
     Active Substance: CYCLOPHOSPHAMIDE
     Dosage: CYCLICAL
     Route: 042
     Dates: start: 20110207
  4. RITUXIMAB [Suspect]
     Active Substance: RITUXIMAB
     Indication: CHRONIC LYMPHOCYTIC LEUKAEMIA
     Dosage: CYCLICAL
     Dates: start: 20110207
  5. RITUXIMAB [Suspect]
     Active Substance: RITUXIMAB
     Dosage: CYCLICAL
     Dates: start: 20110207
  6. NIPENT [Suspect]
     Active Substance: PENTOSTATIN
     Dosage: CYCLICAL
     Route: 042
     Dates: start: 20110207

REACTIONS (15)
  - Pneumonitis [None]
  - Pleural effusion [None]
  - Diarrhoea [None]
  - Cerebrovascular accident [None]
  - Speech disorder [None]
  - Fatigue [None]
  - Anaemia [None]
  - Lung infection [None]
  - Hypotension [None]
  - Fluid intake reduced [None]
  - Sinusitis [None]
  - White blood cell count decreased [None]
  - Sepsis [None]
  - Hypophagia [None]
  - Dehydration [None]

NARRATIVE: CASE EVENT DATE: 20110411
